FAERS Safety Report 8308219-4 (Version None)
Quarter: 2012Q2

REPORT INFORMATION
  Report Type: 
  Country: None (occurrence: None)
  Receive Date: 20120424
  Receipt Date: 20120418
  Transmission Date: 20120825
  Serious: Yes (Hospitalization)
  Sender: FDA-Public Use
  Company Number: US-ALEXION PHARMACEUTICALS INC.-A201200491

PATIENT
  Sex: Male

DRUGS (10)
  1. FOLIC ACID [Concomitant]
     Indication: PAROXYSMAL NOCTURNAL HAEMOGLOBINURIA
     Dosage: 800 MCG, QD
     Route: 048
  2. HYDROXYCHLOROQUINE SULFATE [Concomitant]
     Indication: RHEUMATOID ARTHRITIS
     Dosage: 200 MG, BID
     Route: 048
  3. HYDROCODONE BITARTRATE [Concomitant]
     Indication: PAIN
     Dosage: 4 MG, Q 3 HRS, PRN
     Route: 048
  4. METHOTREXATE [Concomitant]
     Indication: RHEUMATOID ARTHRITIS
     Dosage: UNK
     Route: 048
  5. SOLIRIS [Suspect]
     Indication: PAROXYSMAL NOCTURNAL HAEMOGLOBINURIA
     Dosage: 600 MG, UNK
     Route: 042
     Dates: start: 20091001
  6. PREDNISONE BIOGARAN [Concomitant]
     Indication: RHEUMATOID ARTHRITIS
     Dosage: UNK
  7. COUMADIN [Concomitant]
     Dosage: 5 MG, QD
     Route: 048
  8. AMBIEN [Concomitant]
     Dosage: UNK
  9. SOLIRIS [Suspect]
     Dosage: 1500 MG, Q12 DAYS
     Route: 042
  10. ANDROGEL [Concomitant]
     Indication: BLOOD TESTOSTERONE DECREASED
     Dosage: 40.5 MG, QD
     Route: 062

REACTIONS (6)
  - CHOLECYSTITIS [None]
  - HAEMOGLOBIN DECREASED [None]
  - RECTAL POLYP [None]
  - DIVERTICULUM [None]
  - ALPHA-1 ANTI-TRYPSIN DEFICIENCY [None]
  - COLITIS MICROSCOPIC [None]
